FAERS Safety Report 13615255 (Version 2)
Quarter: 2019Q4

REPORT INFORMATION
  Report Type: Spontaneous
  Country: US (occurrence: US)
  Receive Date: 20170606
  Receipt Date: 20191021
  Transmission Date: 20200122
  Serious: Yes (Other)
  Sender: FDA-Public Use
  Company Number: US-AMGEN-USASP2017083303

PATIENT
  Age: 61 Year
  Sex: Female
  Weight: 52.16 kg

DRUGS (5)
  1. PROLIA [Suspect]
     Active Substance: DENOSUMAB
     Indication: OSTEOPOROSIS POSTMENOPAUSAL
     Dosage: UNK, Q6MO
     Route: 065
  2. SYNTHROID [Concomitant]
     Active Substance: LEVOTHYROXINE SODIUM
     Indication: HYPOTHYROIDISM
     Dosage: 75 MCL, QD
     Dates: start: 2009
  3. PREVNAR 13 [Suspect]
     Active Substance: PNEUMOCOCCAL 13-VALENT CONJUGATE VACCINE
     Indication: IMMUNISATION
     Dosage: 0.5 ML, UNK
     Route: 065
     Dates: start: 20170407, end: 20170407
  4. ASPIRIN. [Concomitant]
     Active Substance: ASPIRIN
     Dosage: UNK
  5. SERTRALINE [Concomitant]
     Active Substance: SERTRALINE HYDROCHLORIDE
     Indication: DEPRESSION
     Dosage: UNK
     Dates: start: 2013

REACTIONS (5)
  - Foot fracture [Not Recovered/Not Resolved]
  - Hand fracture [Unknown]
  - Neuropathy peripheral [Unknown]
  - Jaw disorder [Unknown]
  - Product dose omission [Unknown]

NARRATIVE: CASE EVENT DATE: 2011
